FAERS Safety Report 26197500 (Version 1)
Quarter: 2025Q4

REPORT INFORMATION
  Report Type: Spontaneous
  Country: US (occurrence: US)
  Receive Date: 20251224
  Receipt Date: 20251224
  Transmission Date: 20260117
  Serious: No
  Sender: SANOFI AVENTIS
  Company Number: US-SA-2025SA382033

PATIENT
  Sex: Female

DRUGS (21)
  1. DUPIXENT [Suspect]
     Active Substance: DUPILUMAB
  2. OHTUVAYRE [Suspect]
     Active Substance: ENSIFENTRINE
     Indication: Chronic obstructive pulmonary disease
     Dosage: 3 MG BID (ONCE IN THE MORNING AND ONCE IN THE EVENING)
     Route: 055
     Dates: start: 202411
  3. ENTRESTO [Concomitant]
     Active Substance: SACUBITRIL\VALSARTAN
  4. LASIX [Concomitant]
     Active Substance: FUROSEMIDE
  5. LEVALBUTEROL [Concomitant]
     Active Substance: LEVALBUTEROL
  6. MUCINEX DM MAXIMUM STRENGTH [Concomitant]
     Active Substance: DEXTROMETHORPHAN HYDROBROMIDE\GUAIFENESIN
  7. NIFEDIPINE [Concomitant]
     Active Substance: NIFEDIPINE
  8. ONDANSETRON [Concomitant]
     Active Substance: ONDANSETRON
  9. OXYCODONE HYDROCHLORIDE [Concomitant]
     Active Substance: OXYCODONE HYDROCHLORIDE
  10. POTASSIUM CHLORIDE [Concomitant]
     Active Substance: POTASSIUM CHLORIDE
  11. PREDNISONE [Concomitant]
     Active Substance: PREDNISONE
  12. PROGESTERONE [Concomitant]
     Active Substance: PROGESTERONE
  13. PROMETHAZINE [Concomitant]
     Active Substance: PROMETHAZINE HYDROCHLORIDE
  14. ROPINIROLE HYDROCHLORIDE [Concomitant]
     Active Substance: ROPINIROLE HYDROCHLORIDE
  15. ROSUVASTATIN [Concomitant]
     Active Substance: ROSUVASTATIN
  16. SPIRONOLACTONE [Concomitant]
     Active Substance: SPIRONOLACTONE
  17. TRAMADOL HCL [Concomitant]
     Active Substance: TRAMADOL HYDROCHLORIDE
  18. TRELEGY ELLIPTA [Concomitant]
     Active Substance: FLUTICASONE FUROATE\UMECLIDINIUM BROMIDE\VILANTEROL TRIFENATATE
  19. LIDOCAINE [Concomitant]
     Active Substance: LIDOCAINE
  20. LORATADINE [Concomitant]
     Active Substance: LORATADINE
  21. MONTELUKAST [Concomitant]
     Active Substance: MONTELUKAST

REACTIONS (2)
  - Alopecia [Not Recovered/Not Resolved]
  - Condition aggravated [Not Recovered/Not Resolved]

NARRATIVE: CASE EVENT DATE: 20250101
